FAERS Safety Report 8381368-0 (Version None)
Quarter: 2012Q2

REPORT INFORMATION
  Report Type: 
  Country: None (occurrence: None)
  Receive Date: 20120523
  Receipt Date: 20120510
  Transmission Date: 20120825
  Serious: Yes (Other)
  Sender: FDA-Public Use
  Company Number: NO-ELI_LILLY_AND_COMPANY-NO201205004055

PATIENT
  Sex: Male

DRUGS (2)
  1. ZYPREXA [Suspect]
     Indication: PSYCHOTIC DISORDER
     Dosage: UNK
     Route: 048
     Dates: end: 20120401
  2. TRILEPTAL [Concomitant]
     Dosage: 150 MG, QD
     Route: 048
     Dates: end: 20120401

REACTIONS (4)
  - HYPOTHERMIA [None]
  - SOMNOLENCE [None]
  - MUSCULOSKELETAL STIFFNESS [None]
  - PANCYTOPENIA [None]
